FAERS Safety Report 10083633 (Version 1)
Quarter: 2014Q2

REPORT INFORMATION
  Report Type: Spontaneous
  Country: US (occurrence: US)
  Receive Date: 20140417
  Receipt Date: 20140417
  Transmission Date: 20141212
  Serious: No
  Sender: FDA-Public Use
  Company Number: US-PFIZER INC-2014102132

PATIENT
  Age: 14 Year
  Sex: Male
  Weight: 60.5 kg

DRUGS (8)
  1. GENOTROPIN [Suspect]
     Dosage: 2 MG, (7 DAYS PER WEEK)
     Route: 058
  2. CYPROHEPTADINE [Concomitant]
     Dosage: UNK
  3. VYVANSE [Concomitant]
     Dosage: UNK
  4. TENEX [Concomitant]
     Dosage: UNK
  5. DESMOPRESSIN ACETATE [Concomitant]
     Dosage: UNK
  6. TRAZODONE [Concomitant]
     Dosage: UNK
  7. CLONIDINE [Concomitant]
     Dosage: UNK
  8. DEXTROAMPHETAMINE [Concomitant]
     Dosage: UNK

REACTIONS (2)
  - Injection site bruising [Unknown]
  - Androgen deficiency [Unknown]
